FAERS Safety Report 8988725 (Version 1)
Quarter: 2012Q4

REPORT INFORMATION
  Report Type: 
  Country: US (occurrence: US)
  Receive Date: 20121228
  Receipt Date: 20121228
  Transmission Date: 20130627
  Serious: No
  Sender: FDA-Public Use
  Company Number: US-BAYER-2012-135483

PATIENT
  Age: 70 Year
  Sex: Female
  Weight: 52.15 kg

DRUGS (3)
  1. ALEVE CAPLET/TABLET,MIDOL EXTENDED RELIEF CAPLET [Suspect]
     Indication: ARTHRITIS
     Dosage: 2 DF, QD
     Route: 048
  2. ANTIHYPERTENSIVES [Concomitant]
  3. ASPIRIN [Concomitant]

REACTIONS (1)
  - Incorrect drug administration duration [None]
